FAERS Safety Report 21972680 (Version 1)
Quarter: 2023Q1

REPORT INFORMATION
  Report Type: Spontaneous
  Country: CA (occurrence: CA)
  Receive Date: 20230209
  Receipt Date: 20230209
  Transmission Date: 20230417
  Serious: Yes (Hospitalization, Other)
  Sender: FDA-Public Use
  Company Number: CA-ORGANON-O2302CAN000173

PATIENT
  Age: 79 Year
  Sex: Male

DRUGS (3)
  1. ZOCOR [Interacting]
     Active Substance: SIMVASTATIN
     Indication: Hypercholesterolaemia
     Dosage: 40.0 MILLIGRAM, 1 EVERY 24 HOURS
     Route: 065
  2. COLCHICINE [Interacting]
     Active Substance: COLCHICINE
     Indication: Gout
     Dosage: 0.6 MILLIGRAM, 1 EVERY 24 HOURS
     Route: 048
  3. COLCHICINE [Interacting]
     Active Substance: COLCHICINE
     Dosage: UNK
     Route: 065

REACTIONS (4)
  - Drug interaction [Unknown]
  - Musculoskeletal toxicity [Unknown]
  - Renal failure [Unknown]
  - Rhabdomyolysis [Unknown]
